FAERS Safety Report 6922988-7 (Version None)
Quarter: 2010Q3

REPORT INFORMATION
  Report Type: 
  Country: None (occurrence: None)
  Receive Date: 20100813
  Receipt Date: 20100803
  Transmission Date: 20110219
  Serious: Yes (Other)
  Sender: FDA-Public Use
  Company Number: US-PFIZER INC-2010057204

PATIENT
  Sex: Male

DRUGS (1)
  1. CAMPTOSAR [Suspect]
     Indication: BRONCHIAL CARCINOMA
     Dosage: 240 MG, DAY 1 AND 8 OF 21 DAY CYCLE

REACTIONS (1)
  - SCROTAL ABSCESS [None]
